FAERS Safety Report 6244688-1 (Version None)
Quarter: 2009Q2

REPORT INFORMATION
  Report Type: 
  Country: None (occurrence: None)
  Receive Date: 20090623
  Receipt Date: 20090611
  Transmission Date: 20091009
  Serious: Yes (Death)
  Sender: FDA-Public Use
  Company Number: 006808

PATIENT
  Age: 61 Year
  Sex: Female

DRUGS (1)
  1. PLETAL [Suspect]
     Indication: VASODILATATION
     Dosage: 100 MG, BID, ORAL
     Route: 048
     Dates: start: 20090501, end: 20090501

REACTIONS (1)
  - MOUTH ULCERATION [None]
